FAERS Safety Report 5593154-5 (Version None)
Quarter: 2008Q1

REPORT INFORMATION
  Report Type: 
  Country: None (occurrence: None)
  Receive Date: 20080114
  Receipt Date: 20080114
  Transmission Date: 20080703
  Serious: Yes (Hospitalization, Other)
  Sender: FDA-Public Use
  Company Number: None

PATIENT
  Age: 60 Year
  Sex: Female
  Weight: 136.0791 kg

DRUGS (1)
  1. ABILIFY [Suspect]
     Indication: DEPRESSION

REACTIONS (7)
  - CARDIOMEGALY [None]
  - COUGH [None]
  - DYSKINESIA [None]
  - MUSCLE SPASMS [None]
  - PNEUMONIA [None]
  - RESTLESSNESS [None]
  - TREMOR [None]
